FAERS Safety Report 8916751 (Version 1)
Quarter: 2012Q4

REPORT INFORMATION
  Report Type: 
  Country: US (occurrence: US)
  Receive Date: 20121120
  Receipt Date: 20121120
  Transmission Date: 20130627
  Serious: No
  Sender: FDA-Public Use
  Company Number: US-B.I. PHARMACEUTICALS,INC./RIDGEFIELD-2012-BI-00655BP

PATIENT
  Age: 55 Year
  Sex: Female
  Weight: 107 kg

DRUGS (2)
  1. SPIRIVA [Suspect]
     Indication: CHRONIC OBSTRUCTIVE PULMONARY DISEASE
     Dosage: 18 mcg
     Route: 055
     Dates: start: 20121108
  2. PRAVASTATIN [Concomitant]
     Indication: BLOOD CHOLESTEROL INCREASED
     Dosage: 20 mg
     Route: 048

REACTIONS (4)
  - Oedema mouth [Recovered/Resolved]
  - Gingival swelling [Recovered/Resolved]
  - Lip swelling [Recovered/Resolved]
  - Oral mucosal erythema [Recovered/Resolved]
